FAERS Safety Report 9063624 (Version 1)
Quarter: 2013Q1

REPORT INFORMATION
  Report Type: Spontaneous
  Country: US (occurrence: US)
  Receive Date: 20130131
  Receipt Date: 20130131
  Transmission Date: 20140127
  Serious: No
  Sender: FDA-Public Use
  Company Number: US-ABBOTT-12P-163-0991847-00

PATIENT
  Sex: Female
  Weight: 71.73 kg

DRUGS (8)
  1. HUMIRA [Suspect]
     Indication: PSORIATIC ARTHROPATHY
  2. HUMIRA [Suspect]
     Indication: PSORIASIS
  3. LIPITOR [Suspect]
     Indication: BLOOD CHOLESTEROL INCREASED
     Dates: end: 201207
  4. MOBIC [Concomitant]
     Indication: PSORIATIC ARTHROPATHY
  5. AZULFIDINE [Concomitant]
     Indication: PSORIATIC ARTHROPATHY
  6. AZULFIDINE [Concomitant]
     Indication: PSORIASIS
  7. HYDROCHLOROTHIAZIDE [Concomitant]
     Indication: HYPERTENSION
  8. SIMVASTATIN [Concomitant]
     Indication: BLOOD CHOLESTEROL INCREASED
     Dates: start: 20121004

REACTIONS (8)
  - Insomnia [Not Recovered/Not Resolved]
  - Pain [Not Recovered/Not Resolved]
  - Psoriasis [Not Recovered/Not Resolved]
  - Psoriatic arthropathy [Not Recovered/Not Resolved]
  - Muscle spasms [Recovered/Resolved]
  - Muscle spasms [Recovered/Resolved]
  - Muscle spasms [Recovered/Resolved]
  - Abdominal pain upper [Recovered/Resolved]
